FAERS Safety Report 8494990-8 (Version None)
Quarter: 2012Q3

REPORT INFORMATION
  Report Type: 
  Country: None (occurrence: None)
  Receive Date: 20120709
  Receipt Date: 20120704
  Transmission Date: 20120928
  Serious: Yes (Hospitalization)
  Sender: FDA-Public Use
  Company Number: DE-SANOFI-AVENTIS-2012SA014920

PATIENT
  Age: 64 Year
  Sex: Female

DRUGS (4)
  1. PANTOPRAZOLE [Concomitant]
     Route: 048
  2. PREDNISOLONE [Concomitant]
     Dosage: UP TO 5 MG
     Route: 048
  3. METOPROLOL [Concomitant]
     Route: 048
  4. ARAVA [Suspect]
     Indication: RHEUMATOID ARTHRITIS
     Route: 048
     Dates: start: 20110725

REACTIONS (3)
  - FLATULENCE [None]
  - ABDOMINAL PAIN [None]
  - HISTAMINE INTOLERANCE [None]
